FAERS Safety Report 4422849-1 (Version None)
Quarter: 2004Q3

REPORT INFORMATION
  Report Type: 
  Country: None (occurrence: None)
  Receive Date: 20040809
  Receipt Date: 20040809
  Transmission Date: 20050211
  Serious: Yes (Hospitalization)
  Sender: FDA-Public Use
  Company Number: None

PATIENT
  Age: 14 Year
  Sex: Male
  Weight: 57.9 kg

DRUGS (9)
  1. METHTREXATE [Suspect]
     Indication: NON-HODGKIN'S LYMPHOMA
     Dosage: 12MG ONCE INTRATHECAL
     Route: 037
     Dates: start: 20040721, end: 20040721
  2. CYTARABINE [Suspect]
     Dosage: 128 MG 1X4 DAYS INTRAVENOUS
     Route: 042
     Dates: start: 20040721, end: 20040724
  3. CIPRO [Concomitant]
  4. OMEPRAZOLE [Concomitant]
  5. SEPTRA [Concomitant]
  6. ONDANSETRON [Concomitant]
  7. PERIACTIN [Concomitant]
  8. MERCAPTOPURINE [Concomitant]
  9. CYCLOPHOSPHAMIDE [Concomitant]

REACTIONS (2)
  - CAECITIS [None]
  - COLITIS [None]
